FAERS Safety Report 4502891-2 (Version None)
Quarter: 2004Q4

REPORT INFORMATION
  Report Type: 
  Country: None (occurrence: None)
  Receive Date: 20041116
  Receipt Date: 20041116
  Transmission Date: 20050328
  Serious: Yes (Other)
  Sender: FDA-Public Use
  Company Number: None

PATIENT
  Age: 68 Year
  Sex: Female
  Weight: 83.9154 kg

DRUGS (1)
  1. CARTIA XT [Suspect]
     Indication: HYPERTENSION
     Dosage: 1 CAP A.M.
     Dates: start: 20041003, end: 20041112

REACTIONS (3)
  - BLOOD PRESSURE ABNORMAL [None]
  - DRUG EFFECT DECREASED [None]
  - PHARMACEUTICAL PRODUCT COMPLAINT [None]
